FAERS Safety Report 25984659 (Version 1)
Quarter: 2025Q4

REPORT INFORMATION
  Report Type: Spontaneous
  Country: EU (occurrence: EU)
  Receive Date: 20251031
  Receipt Date: 20251031
  Transmission Date: 20260118
  Serious: Yes (Hospitalization)
  Sender: FRESENIUS KABI
  Company Number: None

PATIENT
  Age: 72 Year
  Sex: Female
  Weight: 49 kg

DRUGS (2)
  1. PACLITAXEL [Suspect]
     Active Substance: PACLITAXEL
     Indication: Malignant melanoma
     Route: 042
  2. PACLITAXEL [Suspect]
     Active Substance: PACLITAXEL
     Indication: Breast cancer

REACTIONS (6)
  - Dyspnoea [Recovering/Resolving]
  - Erythema [Recovering/Resolving]
  - Blood pressure abnormal [Recovering/Resolving]
  - Oxygen saturation abnormal [Recovering/Resolving]
  - Heart rate abnormal [Recovering/Resolving]
  - Body temperature abnormal [Recovering/Resolving]
